FAERS Safety Report 4865838-5 (Version None)
Quarter: 2005Q4

REPORT INFORMATION
  Report Type: 
  Country: None (occurrence: None)
  Receive Date: 20051220
  Receipt Date: 20051206
  Transmission Date: 20060501
  Serious: Yes (Hospitalization)
  Sender: FDA-Public Use
  Company Number: RENA-11624

PATIENT
  Age: 57 Year
  Sex: Female
  Weight: 62 kg

DRUGS (8)
  1. RENAGEL [Suspect]
     Indication: HYPERPHOSPHATAEMIA
     Dosage: 1.6 G DAILY PO
     Route: 048
     Dates: end: 20051107
  2. RAPAMUNE [Suspect]
     Dosage: 6 MG DAILY PO
     Route: 048
     Dates: start: 20050715, end: 20051109
  3. ATACAND [Suspect]
     Dates: end: 20051111
  4. CORTANCYL [Concomitant]
  5. TAHOR [Concomitant]
  6. UNALPHA [Concomitant]
  7. SPECIAFOLDINE [Concomitant]
  8. NEORECORMION [Concomitant]

REACTIONS (2)
  - CRYPTOGENIC ORGANIZING PNEUMONIA [None]
  - REFUSAL OF TREATMENT BY PATIENT [None]
